FAERS Safety Report 13597171 (Version 1)
Quarter: 2017Q2

REPORT INFORMATION
  Report Type: Spontaneous
  Country: SE (occurrence: SE)
  Receive Date: 20170531
  Receipt Date: 20170531
  Transmission Date: 20170830
  Serious: Yes (Other)
  Sender: FDA-Public Use
  Company Number: SE-VIIV HEALTHCARE LIMITED-SE2017081453

PATIENT
  Age: 63 Year
  Sex: Male

DRUGS (20)
  1. RAMIPRIL ACTAVIS [Concomitant]
     Active Substance: RAMIPRIL
     Dosage: UNK
     Route: 065
  2. PROPYDERM CREAM [Concomitant]
     Dosage: UNK
  3. DESCOVY [Concomitant]
     Active Substance: EMTRICITABINE\TENOFOVIR ALAFENAMIDE FUMARATE
     Dosage: UNK
     Route: 065
     Dates: start: 20160925, end: 20170510
  4. LOPERAMID MYLAN [Concomitant]
     Active Substance: LOPERAMIDE
     Dosage: UNK
     Route: 065
  5. VIAGRA [Concomitant]
     Active Substance: SILDENAFIL CITRATE
     Dosage: UNK
  6. SELEXID (PIVMECILLINAM HYDROCHLORIDE) [Concomitant]
     Dosage: UNK
     Route: 065
  7. DIMOR [Concomitant]
     Active Substance: LOPERAMIDE
     Dosage: UNK
     Route: 065
  8. CIALIS [Concomitant]
     Active Substance: TADALAFIL
     Dosage: UNK
  9. KREON [Concomitant]
     Active Substance: PANCRELIPASE
     Dosage: UNK
     Route: 065
  10. SPIRONOLAKTON [Concomitant]
     Active Substance: SPIRONOLACTONE
     Dosage: UNK
     Route: 065
  11. LASIX [Concomitant]
     Active Substance: FUROSEMIDE
     Dosage: UNK
     Route: 065
  12. MYLAN DICLOFENAC [Concomitant]
     Dosage: UNK
  13. MYLAN DICLOFENAC [Concomitant]
     Dosage: UNK
  14. TIVICAY [Suspect]
     Active Substance: DOLUTEGRAVIR SODIUM
     Dosage: 50 MG, QD
     Route: 065
     Dates: start: 20170501, end: 20170510
  15. TREO COMP [Concomitant]
     Dosage: UNK
     Route: 065
  16. KREDEX [Concomitant]
     Active Substance: CARVEDILOL
     Dosage: UNK
     Route: 065
  17. TIVICAY [Suspect]
     Active Substance: DOLUTEGRAVIR SODIUM
     Indication: HIV INFECTION
     Dosage: 50 MG, QD
     Route: 048
     Dates: start: 20160925, end: 20170410
  18. FLUNITRAZEPAM MYLAN [Concomitant]
     Dosage: UNK
     Route: 065
  19. ACETYLCYSTEIN MEDA [Concomitant]
     Dosage: UNK
     Route: 065
  20. BRICANYL [Concomitant]
     Active Substance: TERBUTALINE SULFATE
     Dosage: UNK
     Route: 065

REACTIONS (3)
  - Depression [Not Recovered/Not Resolved]
  - Irritability [Not Recovered/Not Resolved]
  - Memory impairment [Not Recovered/Not Resolved]

NARRATIVE: CASE EVENT DATE: 2016
